FAERS Safety Report 9796489 (Version 3)
Quarter: 2015Q3

REPORT INFORMATION
  Report Type: Report from Study
  Country: CA (occurrence: CA)
  Receive Date: 20140103
  Receipt Date: 20150909
  Transmission Date: 20151125
  Serious: Yes (Other)
  Sender: FDA-Public Use
  Company Number: CA-VIIV HEALTHCARE LIMITED-B0894150A

PATIENT
  Age: 32 Year
  Sex: Male
  Weight: 53.5 kg

DRUGS (19)
  1. MARAVIROC [Suspect]
     Active Substance: MARAVIROC
     Indication: HIV INFECTION
     Dosage: 1 DF, BID
     Route: 048
     Dates: start: 20120315, end: 20130508
  2. TOLTERODINE TARTRATE. [Suspect]
     Active Substance: TOLTERODINE TARTRATE
     Indication: BLADDER CANCER
     Route: 048
     Dates: start: 20120605, end: 20130325
  3. ATIVAN [Concomitant]
     Active Substance: LORAZEPAM
  4. TOVIAZ [Suspect]
     Active Substance: FESOTERODINE FUMARATE
     Indication: CYSTITIS ULCERATIVE
     Dosage: UNK, QD
  5. FLOXACILLIN SODIUM [Concomitant]
     Active Substance: FLUCLOXACILLIN SODIUM ANHYDROUS
  6. TRUVADA [Suspect]
     Active Substance: EMTRICITABINE\TENOFOVIR DISOPROXIL FUMARATE
     Indication: HIV INFECTION
     Dosage: 200/300MG
     Dates: start: 20120315, end: 20130508
  7. CYMBALTA [Suspect]
     Active Substance: DULOXETINE HYDROCHLORIDE
     Indication: BLADDER CANCER
     Route: 048
     Dates: start: 20121101, end: 20130325
  8. TOVIAZ [Suspect]
     Active Substance: FESOTERODINE FUMARATE
     Indication: CYSTITIS ULCERATIVE
  9. RALTEGRAVIR. [Suspect]
     Active Substance: RALTEGRAVIR
     Indication: HIV INFECTION
     Route: 048
     Dates: start: 20120315, end: 20130508
  10. LOPINAVIR + RITONAVIR [Suspect]
     Active Substance: LOPINAVIR\RITONAVIR
     Indication: HIV INFECTION
     Dosage: 200/50MG
     Route: 048
     Dates: start: 20120315
  11. FLOXIN [Concomitant]
     Active Substance: OFLOXACIN
  12. VITAMIN (NOS) [Concomitant]
  13. PENTOSAN POLYSULFATE SODIUM [Suspect]
     Active Substance: PENTOSAN POLYSULFATE SODIUM
     Indication: CYSTITIS
     Dosage: UNK UNK, BID
  14. GABAPENTIN. [Concomitant]
     Active Substance: GABAPENTIN
  15. ELMIRON [Suspect]
     Active Substance: PENTOSAN POLYSULFATE SODIUM
     Indication: CYSTITIS ULCERATIVE
     Dosage: 100 MG BID FROM 05 MARCH 2013 TO 27 MAY 2013
     Route: 048
     Dates: start: 20120711, end: 20130527
  16. ENABLEX [Suspect]
     Active Substance: DARIFENACIN\DARIFENACIN HYDROBROMIDE
     Indication: BLADDER CANCER
     Route: 048
     Dates: start: 20120605, end: 20130201
  17. TOVIAZ [Suspect]
     Active Substance: FESOTERODINE FUMARATE
     Indication: BLADDER CANCER
     Route: 048
     Dates: start: 20121101, end: 20130115
  18. OXYCODONE HYDROCHLORIDE AND ACETAMINOPHEN [Concomitant]
     Active Substance: ACETAMINOPHEN\OXYCODONE HYDROCHLORIDE
     Indication: PAIN
     Route: 048
     Dates: start: 20120327
  19. WELLBUTRIN [Concomitant]
     Active Substance: BUPROPION HYDROCHLORIDE

REACTIONS (1)
  - Neutropenia [Recovered/Resolved]

NARRATIVE: CASE EVENT DATE: 20121218
